FAERS Safety Report 9780822 (Version 1)
Quarter: 2013Q4

REPORT INFORMATION
  Report Type: Report from Study
  Country: KR (occurrence: KR)
  Receive Date: 20131224
  Receipt Date: 20131224
  Transmission Date: 20140711
  Serious: Yes (Other)
  Sender: FDA-Public Use
  Company Number: KR-NAPPMUNDI-GBR-2013-0016658

PATIENT
  Age: 71 Year
  Sex: Male

DRUGS (11)
  1. OXY CR TAB [Suspect]
     Indication: CANCER PAIN
     Dosage: 20 MG, DAILY
     Route: 048
     Dates: start: 20111129
  2. IRCODON IR TABLETS [Suspect]
     Indication: PRODUCT USED FOR UNKNOWN INDICATION
     Dosage: UNK
     Dates: start: 20111111
  3. ISOSORBIDE DINITRATE [Concomitant]
     Indication: PRINZMETAL ANGINA
     Dosage: 80 MG, DAILY
     Route: 048
     Dates: start: 20000718
  4. ECABET SODIUM [Concomitant]
     Indication: PROPHYLAXIS
     Dosage: 3 GRAM, DAILY
     Route: 048
     Dates: start: 20061212
  5. MEGESTROL ACETATE [Concomitant]
     Indication: PROPHYLAXIS
     Dosage: 20 ML, DAILY
     Route: 048
     Dates: start: 20110725
  6. CILOSTAZOL [Concomitant]
     Indication: CEREBELLAR INFARCTION
     Dosage: 200 MG, DAILY
     Route: 048
     Dates: start: 20061210
  7. ASPIRIN [Concomitant]
     Indication: CEREBELLAR INFARCTION
     Dosage: 100 MG, DAILY
     Route: 048
     Dates: start: 20061210
  8. DILTIAZEM [Concomitant]
     Indication: PRINZMETAL ANGINA
     Dosage: 180 MG, DAILY
     Route: 048
     Dates: start: 20000905
  9. WARFARIN SODIUM [Concomitant]
     Indication: DEEP VEIN THROMBOSIS
     Dosage: 2 MG, DAILY
     Route: 048
     Dates: start: 20111201
  10. WARFARIN SODIUM [Concomitant]
     Dosage: 5 MG, DAILY
     Route: 048
     Dates: start: 20111123, end: 20111128
  11. MACPERAN [Concomitant]
     Indication: NAUSEA
     Dosage: 10 MG, DAILY
     Route: 048
     Dates: start: 20111201

REACTIONS (1)
  - Hypoaesthesia [Recovered/Resolved]
